FAERS Safety Report 7763893-6 (Version None)
Quarter: 2011Q3

REPORT INFORMATION
  Report Type: 
  Country: None (occurrence: None)
  Receive Date: 20110921
  Receipt Date: 20110907
  Transmission Date: 20111222
  Serious: Yes (Hospitalization)
  Sender: FDA-Public Use
  Company Number: FR-JNJFOC-20110907053

PATIENT
  Sex: Female

DRUGS (8)
  1. NEORAL [Suspect]
     Indication: PRODUCT USED FOR UNKNOWN INDICATION
     Dosage: 200 MG/D
     Route: 048
     Dates: start: 20110809, end: 20110819
  2. NEORAL [Suspect]
     Dosage: 400 MG/D
     Route: 048
     Dates: start: 20110820, end: 20110823
  3. VALGANCICLOVIR [Suspect]
     Indication: PRODUCT USED FOR UNKNOWN INDICATION
     Route: 048
     Dates: start: 20110722, end: 20110824
  4. FLUCONAZOLE [Suspect]
     Indication: PRODUCT USED FOR UNKNOWN INDICATION
     Route: 065
     Dates: start: 20110722
  5. TRAMADOL HCL [Suspect]
     Indication: PRODUCT USED FOR UNKNOWN INDICATION
     Dosage: 100 MG/D
     Route: 048
  6. NEORAL [Suspect]
     Route: 048
     Dates: start: 20110728, end: 20110803
  7. ORBENIN CAP [Concomitant]
     Route: 065
  8. MYCOPHENOLATE MOFETIL (CELLCEPT) [Suspect]
     Indication: PRODUCT USED FOR UNKNOWN INDICATION
     Dosage: 1500 MG, 2/DAY
     Route: 048
     Dates: start: 20110722

REACTIONS (3)
  - OPSOCLONUS MYOCLONUS [None]
  - AGITATION [None]
  - EPILEPSY [None]
